FAERS Safety Report 5902051-4 (Version None)
Quarter: 2008Q3

REPORT INFORMATION
  Report Type: 
  Country: None (occurrence: None)
  Receive Date: 20080929
  Receipt Date: 20080915
  Transmission Date: 20090109
  Serious: Yes (Hospitalization)
  Sender: FDA-Public Use
  Company Number: FR-ELI_LILLY_AND_COMPANY-FR200806001787

PATIENT
  Age: 86 Year
  Sex: Female

DRUGS (8)
  1. FORTEO [Suspect]
     Indication: OSTEOPOROSIS
     Dosage: 20 UG, DAILY (1/D)
     Route: 058
     Dates: start: 20080110, end: 20080319
  2. DEROXAT [Concomitant]
     Dosage: 10 MG, DAILY (1/D)
     Route: 065
  3. ALDACTAZINE [Concomitant]
     Dosage: UNK, UNKNOWN
     Route: 065
  4. ZYLORIC [Concomitant]
     Dosage: UNK, UNKNOWN
     Route: 065
  5. MONOTILDIEM [Concomitant]
     Dosage: UNK, UNKNOWN
     Route: 065
  6. NEXIUM [Concomitant]
     Dosage: UNK, UNKNOWN
     Route: 065
  7. PROTELOS [Concomitant]
     Dosage: UNK, UNKNOWN
     Route: 065
  8. PLAVIX [Concomitant]
     Dosage: UNK, UNKNOWN
     Route: 065

REACTIONS (1)
  - NEPHROTIC SYNDROME [None]
